FAERS Safety Report 8802773 (Version 1)
Quarter: 2012Q4

REPORT INFORMATION
  Report Type: 
  Country: US (occurrence: US)
  Receive Date: 20120921
  Receipt Date: 20120921
  Transmission Date: 20130627
  Serious: Yes (Other)
  Sender: FDA-Public Use
  Company Number: US-ABBOTT-12P-163-0978914-00

PATIENT
  Age: 52 Year
  Sex: Female
  Weight: 50.85 kg

DRUGS (3)
  1. SYNTHROID [Suspect]
     Indication: HYPOTHYROIDISM
  2. NICOTROL [Suspect]
     Indication: SMOKING CESSATION THERAPY
     Route: 048
     Dates: start: 2011
  3. CALCIUM [Suspect]
     Indication: MINERAL SUPPLEMENTATION

REACTIONS (12)
  - Fall [Unknown]
  - Hyperthyroidism [Recovering/Resolving]
  - Rib fracture [Unknown]
  - Hypokinesia [Unknown]
  - Joint injury [Unknown]
  - Joint injury [Unknown]
  - Back injury [Unknown]
  - Neck injury [Unknown]
  - Psychomotor hyperactivity [Recovering/Resolving]
  - Feeling abnormal [Recovering/Resolving]
  - Feeling abnormal [Recovering/Resolving]
  - Pain [Unknown]
